FAERS Safety Report 6915200-6 (Version None)
Quarter: 2010Q3

REPORT INFORMATION
  Report Type: 
  Country: None (occurrence: None)
  Receive Date: 20100805
  Receipt Date: 20100805
  Transmission Date: 20110219
  Serious: Yes (Hospitalization)
  Sender: FDA-Public Use
  Company Number: None

PATIENT
  Age: 61 Year
  Sex: Male

DRUGS (1)
  1. LENALIDOMIDE [Suspect]
     Dosage: 10 MG EVERY DAY PO
     Route: 048
     Dates: start: 20100503, end: 20100601

REACTIONS (4)
  - ILL-DEFINED DISORDER [None]
  - OEDEMA PERIPHERAL [None]
  - PLEURAL EFFUSION [None]
  - VENTRICULAR TACHYCARDIA [None]
